FAERS Safety Report 23802020 (Version 1)
Quarter: 2024Q2

REPORT INFORMATION
  Report Type: Spontaneous
  Country: US (occurrence: US)
  Receive Date: 20240501
  Receipt Date: 20240501
  Transmission Date: 20240716
  Serious: No
  Sender: FDA-Public Use
  Company Number: US-TEVA-VS-3184118

PATIENT
  Sex: Female

DRUGS (3)
  1. COPAXONE [Suspect]
     Active Substance: GLATIRAMER ACETATE
     Indication: Product used for unknown indication
     Route: 065
  2. TECFIDERA [Concomitant]
     Active Substance: DIMETHYL FUMARATE
  3. OCREVUS [Concomitant]
     Active Substance: OCRELIZUMAB

REACTIONS (1)
  - Rash [Unknown]
